FAERS Safety Report 23998772 (Version 1)
Quarter: 2024Q2

REPORT INFORMATION
  Report Type: Spontaneous
  Country: ZA (occurrence: ZA)
  Receive Date: 20240621
  Receipt Date: 20240621
  Transmission Date: 20240715
  Serious: Yes (Hospitalization)
  Sender: FDA-Public Use
  Company Number: ZA-MACLEODS PHARMA-MAC2024047741

PATIENT

DRUGS (24)
  1. VALSARTAN [Suspect]
     Active Substance: VALSARTAN
     Indication: Hypertension
     Dosage: TAKE ONE TABLET DAILY
     Route: 048
  2. ZOPICLONE [Suspect]
     Active Substance: ZOPICLONE
     Indication: Sleep disorder
     Dosage: TAKE ONE TABLET AT NIGHT
     Route: 048
  3. TRAMADOL [Suspect]
     Active Substance: TRAMADOL\TRAMADOL HYDROCHLORIDE
     Indication: Pain
     Dosage: TAKE TWO TABLETS DAILY
     Route: 048
  4. SIMVASTATIN [Suspect]
     Active Substance: SIMVASTATIN
     Indication: Blood cholesterol
     Dosage: TAKE ONE TABLET DAILY
     Route: 048
  5. LEVOTHYROXINE [Suspect]
     Active Substance: LEVOTHYROXINE\LEVOTHYROXINE SODIUM
     Indication: Hypothyroidism
     Dosage: 100 MCG TAKE ONE TABLET DAILY
     Route: 048
  6. LEVOTHYROXINE [Suspect]
     Active Substance: LEVOTHYROXINE\LEVOTHYROXINE SODIUM
     Dosage: 50 MCG TAKE ONE TABLET DAILY
     Route: 048
  7. LEVOTHYROXINE [Suspect]
     Active Substance: LEVOTHYROXINE\LEVOTHYROXINE SODIUM
     Dosage: 75 MCG TAKE ONE TABLET DAILY
     Route: 048
  8. SPIRONOLACTONE [Suspect]
     Active Substance: SPIRONOLACTONE
     Indication: Hypertension
     Dosage: TAKE ONE TABLET DAILY
     Route: 048
  9. BISOPROLOL [Suspect]
     Active Substance: BISOPROLOL\BISOPROLOL FUMARATE
     Indication: Hypertension
     Dosage: TAKE ONE TABLET DAILY
     Route: 048
  10. ASPIRIN [Suspect]
     Active Substance: ASPIRIN
     Indication: Thrombosis prophylaxis
     Dosage: TAKE ONE TABLET DAILY
     Route: 048
  11. ACECLOFENAC\ACETAMINOPHEN\THIOCOLCHICOSIDE [Suspect]
     Active Substance: ACECLOFENAC\ACETAMINOPHEN\THIOCOLCHICOSIDE
     Indication: Product used for unknown indication
     Dosage: TAKE TWO TABLETS THREE TIMES A DAY
     Route: 048
  12. DIPHENYLPYRALINE [Suspect]
     Active Substance: DIPHENYLPYRALINE
     Indication: Product used for unknown indication
     Dosage: AS PER PACKAGE INSERT
     Route: 065
  13. ALBUTEROL [Suspect]
     Active Substance: ALBUTEROL
     Indication: Bronchospasm
     Dosage: AS PER PACKAGE INSERT
     Route: 065
  14. CHLORTHALIDONE\TELMISARTAN [Suspect]
     Active Substance: CHLORTHALIDONE\TELMISARTAN
     Indication: Hypertension
     Dosage: TAKE ONE TABLET DAILY
     Route: 048
  15. ATORVASTATIN [Suspect]
     Active Substance: ATORVASTATIN
     Indication: Blood cholesterol
     Dosage: TAKE ONE TABLET AT NIGHT
     Route: 048
  16. MICONAZOLE [Suspect]
     Active Substance: MICONAZOLE
     Indication: Product used for unknown indication
     Dosage: AS DIRECTED
     Route: 065
  17. AMLODIPINE [Suspect]
     Active Substance: AMLODIPINE BESYLATE
     Indication: Hypertension
     Dosage: TAKE ONE TABLET DAILY
     Route: 048
  18. ACETAMINOPHEN\CODEINE PHOSPHATE\MEPROBAMATE [Suspect]
     Active Substance: ACETAMINOPHEN\CODEINE PHOSPHATE\MEPROBAMATE
     Indication: Pain
     Dosage: TAKE ONE CAPSULE THREE TIMES A DAY
     Route: 048
  19. ACETAMINOPHEN\CAFFEINE\CODEINE\DOXYLAMINE [Suspect]
     Active Substance: ACETAMINOPHEN\CAFFEINE\CODEINE\DOXYLAMINE
     Indication: Product used for unknown indication
     Dosage: TAKE 1-2 TABLET(S) AFTER MEALS
     Route: 048
  20. ERGOCALCIFEROL [Suspect]
     Active Substance: ERGOCALCIFEROL
     Indication: Product used for unknown indication
     Dosage: TAKE ONE TABLET WEEKLY
     Route: 048
  21. AMLODIPINE BESYLATE\VALSARTAN [Suspect]
     Active Substance: AMLODIPINE BESYLATE\VALSARTAN
     Indication: Hypertension
     Dosage: TAKE ONE TABLET DAILY
     Route: 048
  22. AMLODIPINE BESYLATE\VALSARTAN [Suspect]
     Active Substance: AMLODIPINE BESYLATE\VALSARTAN
     Indication: Hypertension
     Dosage: TAKE ONE TABLET DAILY
     Route: 048
  23. ALBUTEROL [Suspect]
     Active Substance: ALBUTEROL
     Indication: Bronchospasm
     Dosage: AS PER PACKAGE INSERT
     Route: 065
  24. THEOPHYLLINE [Suspect]
     Active Substance: THEOPHYLLINE

REACTIONS (1)
  - Hospitalisation [Unknown]
